FAERS Safety Report 16697308 (Version 1)
Quarter: 2019Q4

REPORT INFORMATION
  Report Type: Spontaneous
  Country: US (occurrence: US)
  Receive Date: 20190812
  Receipt Date: 20190812
  Transmission Date: 20200122
  Serious: No
  Sender: FDA-Public Use
  Company Number: None

PATIENT
  Age: 31 Year
  Sex: Female
  Weight: 94.5 kg

DRUGS (1)
  1. ZUBSOLV [Suspect]
     Active Substance: BUPRENORPHINE HYDROCHLORIDE\NALOXONE HYDROCHLORIDE
     Indication: DRUG USE DISORDER
     Dosage: ?          QUANTITY:1 TABLET(S);?
     Route: 060
     Dates: start: 20180417

REACTIONS (9)
  - Drug abuser [None]
  - Somnolence [None]
  - Visual impairment [None]
  - Apathy [None]
  - Toxicity to various agents [None]
  - Hepatitis C [None]
  - Drug level above therapeutic [None]
  - Anxiety [None]
  - Antidepressant drug level below therapeutic [None]

NARRATIVE: CASE EVENT DATE: 20190812
